FAERS Safety Report 4393731-3 (Version None)
Quarter: 2004Q3

REPORT INFORMATION
  Report Type: 
  Country: None (occurrence: None)
  Receive Date: 20040709
  Receipt Date: 20040604
  Transmission Date: 20050211
  Serious: Yes (Disabling)
  Sender: FDA-Public Use
  Company Number: JP-GLAXOSMITHKLINE-B0335105A

PATIENT
  Age: 56 Year
  Sex: Male
  Weight: 54 kg

DRUGS (13)
  1. VALTREX [Suspect]
     Indication: HERPES ZOSTER
     Dosage: 1000MG THREE TIMES PER DAY
     Route: 048
     Dates: start: 20040531, end: 20040601
  2. HEMODIALYSIS [Concomitant]
  3. LOXONIN [Concomitant]
     Indication: HERPES ZOSTER
     Dosage: 3TAB PER DAY
     Route: 048
     Dates: start: 20040531, end: 20040601
  4. MUCOSTA [Concomitant]
     Indication: HERPES ZOSTER
     Dosage: 3TAB PER DAY
     Route: 048
     Dates: start: 20040531, end: 20040601
  5. CYANOCOBALAMIN [Concomitant]
     Indication: HERPES ZOSTER
     Dosage: 1500MCG PER DAY
     Route: 048
     Dates: start: 20040531, end: 20040601
  6. ALLOPURINOL TAB [Concomitant]
     Indication: BLOOD URIC ACID INCREASED
     Dosage: 100MG PER DAY
     Route: 048
  7. BAYASPIRIN [Concomitant]
     Indication: THROMBOSIS PROPHYLAXIS
     Dosage: 100MG PER DAY
     Route: 048
     Dates: start: 20021004
  8. ALFAROL [Concomitant]
     Indication: HYPOCALCAEMIA
     Dosage: .25MG PER DAY
     Route: 048
     Dates: start: 20030711
  9. ZANTAC [Concomitant]
     Indication: GASTRIC ULCER
     Dosage: 75MG PER DAY
     Route: 048
     Dates: start: 19990820
  10. FERROMIA (SODIUM FERROUS CITRATE) [Concomitant]
     Indication: DEFICIENCY ANAEMIA
     Dosage: 3TAB PER DAY
     Route: 048
     Dates: start: 20020726
  11. VITAMEDIN [Concomitant]
     Indication: HYPOAESTHESIA
     Dosage: 75MG PER DAY
     Route: 048
  12. ALDOMET [Concomitant]
     Indication: HYPERTENSION
     Dosage: 375MG PER DAY
     Route: 048
     Dates: start: 20030718
  13. CALTAN [Concomitant]
     Indication: BLOOD PHOSPHORUS INCREASED
     Dosage: 1500MG PER DAY
     Route: 048
     Dates: start: 20020419

REACTIONS (8)
  - DIFFICULTY IN WALKING [None]
  - DIZZINESS [None]
  - ENCEPHALOPATHY [None]
  - HAEMODIALYSIS [None]
  - NAUSEA [None]
  - OVERDOSE [None]
  - SPEECH DISORDER [None]
  - VOMITING [None]
